FAERS Safety Report 19117126 (Version 1)
Quarter: 2021Q2

REPORT INFORMATION
  Report Type: Spontaneous
  Country: ES (occurrence: ES)
  Receive Date: 20210409
  Receipt Date: 20210409
  Transmission Date: 20210717
  Serious: Yes (Other)
  Sender: FDA-Public Use
  Company Number: NVSC2021ES073902

PATIENT
  Age: 56 Year
  Sex: Male

DRUGS (2)
  1. REVOLADE [Suspect]
     Active Substance: ELTROMBOPAG OLAMINE
     Dosage: 75 MG
     Route: 065
  2. REVOLADE [Suspect]
     Active Substance: ELTROMBOPAG OLAMINE
     Indication: IMMUNE THROMBOCYTOPENIA
     Dosage: 50 MG, QD
     Route: 048
     Dates: start: 20201125, end: 20201209

REACTIONS (4)
  - Thrombosis mesenteric vessel [Unknown]
  - Deep vein thrombosis [Recovered/Resolved]
  - Hypercoagulation [Unknown]
  - Drug ineffective [Unknown]

NARRATIVE: CASE EVENT DATE: 20201209
